FAERS Safety Report 25319803 (Version 1)
Quarter: 2025Q2

REPORT INFORMATION
  Report Type: Report from Study
  Country: RU (occurrence: RU)
  Receive Date: 20250515
  Receipt Date: 20250515
  Transmission Date: 20250716
  Serious: Yes (Other)
  Sender: NOVARTIS
  Company Number: RU-002147023-NVSC2025RU075065

PATIENT
  Age: 73 Year
  Sex: Male

DRUGS (4)
  1. DABRAFENIB [Suspect]
     Active Substance: DABRAFENIB
     Indication: Malignant melanoma
     Dosage: 150 MG, BID
     Route: 048
     Dates: start: 20230407
  2. DABRAFENIB [Suspect]
     Active Substance: DABRAFENIB
     Indication: BRAF V600E mutation positive
     Dosage: 75 MG, QD (REDUCED DOSE)
     Route: 065
  3. TRAMETINIB [Suspect]
     Active Substance: TRAMETINIB
     Indication: Malignant melanoma
     Dosage: 2 MG, QD
     Route: 048
     Dates: start: 20230407
  4. TRAMETINIB [Suspect]
     Active Substance: TRAMETINIB
     Indication: BRAF V600E mutation positive

REACTIONS (3)
  - Hypertension [Recovered/Resolved]
  - Rash [Recovering/Resolving]
  - Pruritus [Recovering/Resolving]
